FAERS Safety Report 12697532 (Version 1)
Quarter: 2016Q3

REPORT INFORMATION
  Report Type: Spontaneous
  Country: None (occurrence: None)
  Receive Date: 20160829
  Receipt Date: 20160829
  Transmission Date: 20161109
  Serious: No
  Sender: FDA-Public Use
  Company Number: None

PATIENT
  Age: 42 Year
  Sex: Female
  Weight: 91.63 kg

DRUGS (9)
  1. TRULICITY [Concomitant]
     Active Substance: DULAGLUTIDE
  2. DEXILANT [Concomitant]
     Active Substance: DEXLANSOPRAZOLE
  3. SYNTHROID [Concomitant]
     Active Substance: LEVOTHYROXINE SODIUM
  4. METFORMIN [Concomitant]
     Active Substance: METFORMIN HYDROCHLORIDE
  5. VITAMIN E [Concomitant]
     Active Substance: .ALPHA.-TOCOPHEROL
  6. DILTIAZEM CD 120 MG/24 HRS, 120MG PAR [Suspect]
     Active Substance: DILTIAZEM
     Indication: PALPITATIONS
     Dosage: 90 CAPSULE(S) ONCE A DAY TAKEN BY MOUTH
     Route: 048
     Dates: start: 20160810, end: 20160826
  7. MVM [Concomitant]
  8. PROBIOTICS [Concomitant]
     Active Substance: PROBIOTICS NOS
  9. GARLIC. [Concomitant]
     Active Substance: GARLIC

REACTIONS (3)
  - Palpitations [None]
  - Product substitution issue [None]
  - Rash [None]

NARRATIVE: CASE EVENT DATE: 20160824
